FAERS Safety Report 11906646 (Version 1)
Quarter: 2016Q1

REPORT INFORMATION
  Report Type: Spontaneous
  Country: US (occurrence: None)
  Receive Date: 20160108
  Receipt Date: 20160108
  Transmission Date: 20160526
  Serious: No
  Sender: FDA-Public Use
  Company Number: None

PATIENT
  Age: 52 Year
  Sex: Male
  Weight: 83.01 kg

DRUGS (8)
  1. AZELASTINE HCL [Concomitant]
     Active Substance: AZELASTINE HYDROCHLORIDE
  2. FISH OIL [Concomitant]
     Active Substance: FISH OIL
  3. CLONAZEPAM. [Concomitant]
     Active Substance: CLONAZEPAM
  4. VITAMIN D3 [Concomitant]
     Active Substance: CHOLECALCIFEROL
  5. NASACORT [Concomitant]
     Active Substance: TRIAMCINOLONE ACETONIDE
  6. MAGNESIUM [Concomitant]
     Active Substance: MAGNESIUM
  7. AZELASTINE HCL 137 MCG BRECKENRIDGE PHARMACEUTICAL, INC [Suspect]
     Active Substance: AZELASTINE HYDROCHLORIDE
     Indication: SINUS DISORDER
     Dosage: SPRAYS IN EACH NOSTRIL; PUFFS
  8. LEXAPRO (GENERIC) [Concomitant]

REACTIONS (7)
  - Inflammation [None]
  - Drug hypersensitivity [None]
  - Swelling [None]
  - Sinus disorder [None]
  - Headache [None]
  - Ear swelling [None]
  - Product substitution issue [None]

NARRATIVE: CASE EVENT DATE: 20160103
